FAERS Safety Report 7054162-0 (Version None)
Quarter: 2010Q4

REPORT INFORMATION
  Report Type: 
  Country: None (occurrence: None)
  Receive Date: 20101015
  Receipt Date: 20100929
  Transmission Date: 20110411
  Serious: Yes (Hospitalization)
  Sender: FDA-Public Use
  Company Number: 8032503

PATIENT
  Sex: Female
  Weight: 48 kg

DRUGS (15)
  1. CERTOLIZUMAB PEGOL (CDP870) [Suspect]
     Indication: CROHN'S DISEASE
     Dosage: (400 MG 1X/2 WEEKS, - NR OF DOSES :3 SUBCUTANEOUS), (SUBCUTANEOUS)
     Route: 058
     Dates: end: 20070621
  2. CERTOLIZUMAB PEGOL (CDP870) [Suspect]
     Indication: CROHN'S DISEASE
     Dosage: (400 MG 1X/2 WEEKS, - NR OF DOSES :3 SUBCUTANEOUS), (SUBCUTANEOUS)
     Route: 058
     Dates: start: 20070705, end: 20070828
  3. CERTOLIZUMAB PEGOL (CDP870) [Suspect]
     Indication: CROHN'S DISEASE
     Dosage: (400 MG 1X/2 WEEKS, - NR OF DOSES :3 SUBCUTANEOUS), (SUBCUTANEOUS)
     Route: 058
     Dates: start: 20070907, end: 20080706
  4. CERTOLIZUMAB PEGOL (CDP870) [Suspect]
     Indication: CROHN'S DISEASE
     Dosage: (400 MG 1X/2 WEEKS, - NR OF DOSES :3 SUBCUTANEOUS), (SUBCUTANEOUS)
     Route: 058
     Dates: start: 20061218
  5. IMUREK /00001501/ [Concomitant]
  6. ZOLPIDEM TARTRATE [Concomitant]
  7. MAGNESIUM VERLA /00648601/ [Concomitant]
  8. MIRTAZAPIN [Concomitant]
  9. EFFECTIN /00533902/ [Concomitant]
  10. ZYPREXA [Concomitant]
  11. TRAMADOL HCL [Concomitant]
  12. AMITRIPTYLINE HCL [Concomitant]
  13. FOLSAN [Concomitant]
  14. KALIORAL /01164701/ [Concomitant]
  15. CAL-D-VITA /00944201/ [Concomitant]

REACTIONS (10)
  - ASTHENIA [None]
  - AURICULAR SWELLING [None]
  - DEPRESSION [None]
  - ECZEMA [None]
  - FREQUENT BOWEL MOVEMENTS [None]
  - HYPOKALAEMIA [None]
  - MALNUTRITION [None]
  - PAROTITIS [None]
  - PURULENCE [None]
  - WEIGHT DECREASED [None]
